FAERS Safety Report 9691612 (Version 1)
Quarter: 2013Q4

REPORT INFORMATION
  Report Type: Spontaneous
  Country: JP (occurrence: JP)
  Receive Date: 20131115
  Receipt Date: 20131115
  Transmission Date: 20140711
  Serious: Yes (Death)
  Sender: FDA-Public Use
  Company Number: PHHY2013JP130075

PATIENT
  Age: 27 Year
  Sex: Female

DRUGS (2)
  1. VINORELBINE [Suspect]
     Indication: BREAST CANCER STAGE IV
     Dosage: 25 MG/M2, ON DAYS 1 AND 8
  2. TRASTUZUMAB [Suspect]
     Indication: BREAST CANCER STAGE IV
     Dosage: 2 MG/KG, ON DAYS 1, 8, AND 15

REACTIONS (3)
  - Respiratory failure [Fatal]
  - Lymphangiosis carcinomatosa [Fatal]
  - Drug ineffective [Unknown]
